FAERS Safety Report 5261049-2 (Version None)
Quarter: 2007Q1

REPORT INFORMATION
  Report Type: 
  Country: None (occurrence: None)
  Receive Date: 20070309
  Receipt Date: 20070226
  Transmission Date: 20070707
  Serious: Yes (Other)
  Sender: FDA-Public Use
  Company Number: GB-ELI_LILLY_AND_COMPANY-GB200702005404

PATIENT
  Age: 87 Year
  Sex: Male
  Weight: 79 kg

DRUGS (2)
  1. XIGRIS [Suspect]
     Dosage: 0.024 MG/KG, EVERY HOUR
     Dates: start: 20070225
  2. CLEXANE [Concomitant]
     Indication: ANTICOAGULANT THERAPY
     Dosage: 20 MG, UNK

REACTIONS (1)
  - HYPERVOLAEMIA [None]
